FAERS Safety Report 22649848 (Version 10)
Quarter: 2025Q1

REPORT INFORMATION
  Report Type: Report from Study
  Country: US (occurrence: US)
  Receive Date: 20230628
  Receipt Date: 20250203
  Transmission Date: 20250408
  Serious: Yes (Hospitalization, Other)
  Sender: TAKEDA
  Company Number: US-TAKEDA-2022TUS004275

PATIENT
  Age: 78 Year
  Sex: Female
  Weight: 59 kg

DRUGS (47)
  1. HUMAN IMMUNOGLOBULIN G [Suspect]
     Active Substance: HUMAN IMMUNOGLOBULIN G
     Indication: Selective IgG subclass deficiency
     Dosage: 35 GRAM, Q4WEEKS
     Dates: start: 20190703
  2. HUMAN IMMUNOGLOBULIN G [Suspect]
     Active Substance: HUMAN IMMUNOGLOBULIN G
     Indication: Immunodeficiency
     Dosage: 35 GRAM, Q4WEEKS
     Dates: start: 20200205
  3. HUMAN IMMUNOGLOBULIN G [Suspect]
     Active Substance: HUMAN IMMUNOGLOBULIN G
     Indication: Primary immunodeficiency syndrome
     Dosage: 30 GRAM, Q4WEEKS
  4. HUMAN IMMUNOGLOBULIN G [Suspect]
     Active Substance: HUMAN IMMUNOGLOBULIN G
     Dosage: 35 GRAM, Q4WEEKS
  5. EPINEPHRINE [Concomitant]
     Active Substance: EPINEPHRINE
  6. ACETAMINOPHEN [Concomitant]
     Active Substance: ACETAMINOPHEN
     Indication: Product used for unknown indication
  7. Omega [Concomitant]
  8. FLUBLOK QUADRIVALENT NOS [Concomitant]
     Active Substance: INFLUENZA VIRUS VACCINE
     Indication: Product used for unknown indication
  9. LIPITOR [Concomitant]
     Active Substance: ATORVASTATIN CALCIUM
     Indication: Product used for unknown indication
  10. SINGULAIR [Concomitant]
     Active Substance: MONTELUKAST SODIUM
     Indication: Product used for unknown indication
  11. BROVANA [Concomitant]
     Active Substance: ARFORMOTEROL TARTRATE
     Indication: Product used for unknown indication
  12. SODIUM CHLORIDE [Concomitant]
     Active Substance: SODIUM CHLORIDE
     Indication: Product used for unknown indication
  13. COQ [Concomitant]
  14. LEVALBUTEROL HYDROCHLORIDE [Concomitant]
     Active Substance: LEVALBUTEROL HYDROCHLORIDE
  15. HYDROXYCHLOROQUINE SULFATE [Concomitant]
     Active Substance: HYDROXYCHLOROQUINE SULFATE
  16. PULMICORT TURBUHALER [Concomitant]
     Active Substance: BUDESONIDE
  17. LEVALBUTEROL TARTRATE [Concomitant]
     Active Substance: LEVALBUTEROL TARTRATE
  18. FIBER THERAPY (CALCIUM POLYCARBOPHIL) [Concomitant]
     Active Substance: CALCIUM POLYCARBOPHIL
  19. ACIPHEX [Concomitant]
     Active Substance: RABEPRAZOLE SODIUM
  20. METOPROLOL SUCCINATE [Concomitant]
     Active Substance: METOPROLOL SUCCINATE
  21. LEVSIN [Concomitant]
     Active Substance: HYOSCYAMINE SULFATE
  22. ZINC [Concomitant]
     Active Substance: ZINC
  23. SPIRIVA RESPIMAT [Concomitant]
     Active Substance: TIOTROPIUM BROMIDE
     Indication: Product used for unknown indication
  24. LATANOPROST [Concomitant]
     Active Substance: LATANOPROST
  25. DIPHENHYDRAMINE HYDROCHLORIDE [Concomitant]
     Active Substance: DIPHENHYDRAMINE HYDROCHLORIDE
  26. LUNESTA [Concomitant]
     Active Substance: ESZOPICLONE
     Indication: Product used for unknown indication
  27. GABAPENTIN [Concomitant]
     Active Substance: GABAPENTIN
  28. MODERNA COVID-19 VACCINE [Concomitant]
     Active Substance: ELASOMERAN
     Indication: Product used for unknown indication
  29. HYOSCYAMINE SULFATE [Concomitant]
     Active Substance: HYOSCYAMINE SULFATE
  30. YUPELRI [Concomitant]
     Active Substance: REVEFENACIN
  31. TYLENOL EXTRA STRENGTH [Concomitant]
     Active Substance: ACETAMINOPHEN
  32. SOLU-MEDROL [Concomitant]
     Active Substance: METHYLPREDNISOLONE SODIUM SUCCINATE
     Indication: Product used for unknown indication
  33. SODIUM CHLORIDE [Concomitant]
     Active Substance: SODIUM CHLORIDE
     Indication: Product used for unknown indication
  34. GLUCOSAMINE [Concomitant]
     Active Substance: GLUCOSAMINE
  35. VITAMIN D3 [Concomitant]
     Active Substance: CHOLECALCIFEROL
  36. DIPHENHYDRAMINE [Concomitant]
     Active Substance: DIPHENHYDRAMINE
  37. ACETYLCYSTEINE [Concomitant]
     Active Substance: ACETYLCYSTEINE
     Indication: Product used for unknown indication
  38. GLUCOSAMINE [Concomitant]
     Active Substance: GLUCOSAMINE
     Indication: Product used for unknown indication
  39. NITROGLYCERIN [Concomitant]
     Active Substance: NITROGLYCERIN
  40. GOLD [Concomitant]
     Active Substance: GOLD
  41. BENADRYL [Concomitant]
     Active Substance: DIPHENHYDRAMINE HYDROCHLORIDE
  42. METOPROLOL [Concomitant]
     Active Substance: METOPROLOL
  43. ALBUTEROL [Concomitant]
     Active Substance: ALBUTEROL
  44. ELIQUIS [Concomitant]
     Active Substance: APIXABAN
  45. PROLIA [Concomitant]
     Active Substance: DENOSUMAB
  46. OXYGEN [Concomitant]
     Active Substance: OXYGEN
  47. BENZONATATE [Concomitant]
     Active Substance: BENZONATATE

REACTIONS (22)
  - Breast cancer [Unknown]
  - Road traffic accident [Unknown]
  - Thermal burn [Recovering/Resolving]
  - Atrial fibrillation [Recovered/Resolved]
  - Pseudomonas infection [Unknown]
  - Pneumonia [Unknown]
  - Staphylococcal bacteraemia [Unknown]
  - COVID-19 [Recovered/Resolved]
  - Musculoskeletal discomfort [Recovered/Resolved]
  - Infusion related reaction [Recovered/Resolved]
  - Nasopharyngitis [Unknown]
  - Product supply issue [Unknown]
  - Upper respiratory tract infection [Unknown]
  - Musculoskeletal stiffness [Unknown]
  - Influenza [Unknown]
  - Asthma [Unknown]
  - Wheezing [Recovered/Resolved]
  - Tachycardia [Unknown]
  - Cough [Unknown]
  - Dyspnoea [Unknown]
  - Diarrhoea [Unknown]
  - Headache [Recovered/Resolved]

NARRATIVE: CASE EVENT DATE: 20220113
